FAERS Safety Report 8138445-9 (Version None)
Quarter: 2012Q1

REPORT INFORMATION
  Report Type: 
  Country: None (occurrence: None)
  Receive Date: 20120213
  Receipt Date: 20120127
  Transmission Date: 20120608
  Serious: Yes (Other)
  Sender: FDA-Public Use
  Company Number: TCI2012A00362

PATIENT
  Age: 75 Year
  Sex: Male

DRUGS (2)
  1. BASEN TABLETS 0.3 (VOGLIBOSE) [Suspect]
     Dosage: PER ORAL
     Route: 048
     Dates: start: 20090301, end: 20090701
  2. ACTOS [Suspect]
     Dosage: PER ORAL
     Route: 048
     Dates: start: 20090201, end: 20090701

REACTIONS (1)
  - HYPOGLYCAEMIC ENCEPHALOPATHY [None]
